FAERS Safety Report 8355046-8 (Version None)
Quarter: 2012Q2

REPORT INFORMATION
  Report Type: 
  Country: None (occurrence: None)
  Receive Date: 20120511
  Receipt Date: 20120508
  Transmission Date: 20120825
  Serious: No
  Sender: FDA-Public Use
  Company Number: US-TEVA-337425USA

PATIENT
  Sex: Female

DRUGS (2)
  1. PROAIR HFA [Suspect]
  2. BECLOMETHASONE DIPROPIONATE [Suspect]

REACTIONS (1)
  - DYSPNOEA [None]
